FAERS Safety Report 5753763-7 (Version None)
Quarter: 2008Q2

REPORT INFORMATION
  Report Type: 
  Country: None (occurrence: None)
  Receive Date: 20080530
  Receipt Date: 20080522
  Transmission Date: 20081010
  Serious: Yes (Hospitalization)
  Sender: FDA-Public Use
  Company Number: AU-ABBOTT-08P-008-0453009-00

PATIENT
  Sex: Female
  Weight: 81 kg

DRUGS (10)
  1. SEVORANE LIQUID FOR INHALATION [Suspect]
     Indication: DRUG USE FOR UNKNOWN INDICATION
  2. DOASETRON MESYLATE [Suspect]
     Indication: DRUG USE FOR UNKNOWN INDICATION
     Dosage: 12.5 MG ONCE
  3. FENTANYL-100 [Suspect]
     Indication: DRUG USE FOR UNKNOWN INDICATION
     Dosage: 50 MCG ONCE
     Dates: start: 20070305
  4. FENTANYL-100 [Suspect]
     Dosage: 200 MCG ONCE
  5. PROPOFOL [Suspect]
     Indication: DRUG USE FOR UNKNOWN INDICATION
     Dosage: 180 MG ONCE
  6. ROCURONIUM BROMIDE [Suspect]
     Indication: DRUG USE FOR UNKNOWN INDICATION
     Dosage: 40 MG ONCE
  7. KETOROLAC TROMETHAMINE [Suspect]
     Indication: DRUG USE FOR UNKNOWN INDICATION
     Dosage: 10 MG ONCE
     Dates: start: 20070305
  8. LAMOTRIGINE [Concomitant]
     Indication: EPILEPSY
     Dosage: TWICE DAILY
  9. LAMITRIN [Concomitant]
     Indication: EPILEPSY
     Dosage: 10 MG DAILY, 5 MG TWICE DAILY
  10. CARBAMAZEPINE [Concomitant]
     Indication: EPILEPSY
     Dosage: 400 MG DAILY, 200 MG TWICE DAILY

REACTIONS (1)
  - MYOCLONIC EPILEPSY [None]
